FAERS Safety Report 23785399 (Version 2)
Quarter: 2024Q2

REPORT INFORMATION
  Report Type: Spontaneous
  Country: PT (occurrence: PT)
  Receive Date: 20240425
  Receipt Date: 20240523
  Transmission Date: 20240716
  Serious: Yes (Disabling)
  Sender: FDA-Public Use
  Company Number: None

PATIENT
  Age: 36 Year
  Sex: Female
  Weight: 72 kg

DRUGS (4)
  1. ZITHROMAX [Suspect]
     Active Substance: AZITHROMYCIN DIHYDRATE
     Indication: Respiratory tract infection
     Dosage: 500 MG, 1X/DAY
     Route: 048
     Dates: start: 20240327, end: 20240329
  2. INDERAL [Concomitant]
     Active Substance: PROPRANOLOL HYDROCHLORIDE
     Dosage: UNK
  3. ESCITALOPRAM BLUEFISH [Concomitant]
     Dosage: UNK
  4. DROSPIRENONA + ETINILESTRADIOL MYLAN [Concomitant]
     Dosage: UNK

REACTIONS (2)
  - Presyncope [Recovered/Resolved]
  - Abdominal pain [Recovered/Resolved]

NARRATIVE: CASE EVENT DATE: 20240327
